FAERS Safety Report 5492781-3 (Version None)
Quarter: 2007Q4

REPORT INFORMATION
  Report Type: 
  Country: None (occurrence: None)
  Receive Date: 20071023
  Receipt Date: 20071012
  Transmission Date: 20080405
  Serious: Yes (Hospitalization, Other)
  Sender: FDA-Public Use
  Company Number: PHHO2007NL15847

PATIENT
  Age: 54 Year
  Sex: Female

DRUGS (5)
  1. IMATINIB [Suspect]
     Indication: CHRONIC MYELOID LEUKAEMIA
     Dosage: 800 MG, BID
     Route: 048
     Dates: start: 20060817, end: 20061108
  2. IMATINIB [Suspect]
     Dosage: UNK, UNK
     Route: 048
     Dates: start: 20061201
  3. FUROSEMIDE [Suspect]
  4. DARBEPOETIN ALFA [Concomitant]
  5. ACETAMINOPHEN W/ CODEINE [Concomitant]

REACTIONS (9)
  - ASPIRATION PLEURAL CAVITY [None]
  - BLOOD POTASSIUM DECREASED [None]
  - BLOOD SODIUM INCREASED [None]
  - BODY TEMPERATURE INCREASED [None]
  - CONFUSIONAL STATE [None]
  - DEHYDRATION [None]
  - FLUID RETENTION [None]
  - HYPERNATRAEMIA [None]
  - INFECTION [None]
